FAERS Safety Report 6376464-3 (Version None)
Quarter: 2009Q3

REPORT INFORMATION
  Report Type: 
  Country: None (occurrence: None)
  Receive Date: 20090921
  Receipt Date: 20090911
  Transmission Date: 20100115
  Serious: Yes (Death)
  Sender: FDA-Public Use
  Company Number: GXKR2009DE10288

PATIENT
  Age: 58 Year
  Sex: Male

DRUGS (4)
  1. TRAMADOL (NGX) (TRAMADOL) UNKNOWN [Suspect]
  2. TRIMIPRAMINE (NGX) (TRIMIPRAMINE) UNKNOWN [Suspect]
  3. BROMAZEPAM (NGX) (BROMAZEPAM) UNKNOWN [Suspect]
  4. DOXEPIN HCL [Suspect]

REACTIONS (3)
  - CARDIOMEGALY [None]
  - MEDICATION RESIDUE [None]
  - OVERDOSE [None]
